FAERS Safety Report 12140657 (Version 2)
Quarter: 2016Q1

REPORT INFORMATION
  Report Type: Spontaneous
  Country: FR (occurrence: FR)
  Receive Date: 20160303
  Receipt Date: 20160315
  Transmission Date: 20160526
  Serious: Yes (Other)
  Sender: FDA-Public Use
  Company Number: FR-BAYER-2016-038724

PATIENT
  Age: 36 Year
  Sex: Female

DRUGS (1)
  1. GADOVIST [Suspect]
     Active Substance: GADOBUTROL
     Indication: NUCLEAR MAGNETIC RESONANCE IMAGING
     Dosage: 7.5 ML, ONCE
     Dates: start: 201602, end: 201602

REACTIONS (6)
  - Injection site induration [None]
  - Lymphangitis [None]
  - Injection site erythema [None]
  - Skin warm [None]
  - Product quality issue [None]
  - Pyrexia [None]

NARRATIVE: CASE EVENT DATE: 20160225
